FAERS Safety Report 25052238 (Version 1)
Quarter: 2025Q1

REPORT INFORMATION
  Report Type: Spontaneous
  Country: US (occurrence: US)
  Receive Date: 20250307
  Receipt Date: 20250307
  Transmission Date: 20250409
  Serious: Yes (Other)
  Sender: INTRABIO
  Company Number: US-IBO-202500048

PATIENT
  Age: 11 Year
  Sex: Female
  Weight: 23 kg

DRUGS (1)
  1. AQNEURSA [Suspect]
     Active Substance: ACETYLLEUCINE, L-
     Indication: Product used for unknown indication
     Route: 065

REACTIONS (2)
  - Cataplexy [Unknown]
  - Fatigue [Unknown]
